FAERS Safety Report 9350781 (Version 3)
Quarter: 2013Q3

REPORT INFORMATION
  Report Type: Report from Study
  Country: FR (occurrence: FR)
  Receive Date: 20130617
  Receipt Date: 20130819
  Transmission Date: 20140515
  Serious: Yes (Hospitalization)
  Sender: FDA-Public Use
  Company Number: FR-MILLENNIUM PHARMACEUTICALS, INC.-2013-04368

PATIENT
  Sex: 0

DRUGS (6)
  1. VELCADE [Suspect]
     Indication: MANTLE CELL LYMPHOMA
     Dosage: 2.2 MG, UNK
     Route: 058
     Dates: start: 20120321, end: 20120823
  2. VELCADE [Suspect]
     Dosage: 2.2 MG, UNK
     Route: 058
     Dates: start: 20120620, end: 20120716
  3. MABTHERA [Suspect]
     Indication: MANTLE CELL LYMPHOMA
     Dosage: 635 MG, QD
     Route: 042
     Dates: start: 20120331, end: 20120813
  4. LEVACT [Suspect]
     Indication: MANTLE CELL LYMPHOMA
     Dosage: 150 MG, UNK
     Route: 042
     Dates: start: 20120321, end: 20120813
  5. DEXAMETHASONE [Suspect]
     Indication: MANTLE CELL LYMPHOMA
     Dosage: 40 MG, QD
     Route: 042
     Dates: start: 20120322, end: 20120814
  6. PREVISCAN                          /00789001/ [Concomitant]
     Indication: CARDIAC DISORDER

REACTIONS (3)
  - Chest pain [Recovered/Resolved]
  - Abdominal pain [Recovered/Resolved]
  - Diarrhoea [Recovered/Resolved]
